FAERS Safety Report 7321919-8 (Version None)
Quarter: 2011Q1

REPORT INFORMATION
  Report Type: 
  Country: None (occurrence: None)
  Receive Date: 20110228
  Receipt Date: 20110221
  Transmission Date: 20110831
  Serious: Yes (Other)
  Sender: FDA-Public Use
  Company Number: US-ROCHE-761438

PATIENT
  Sex: Female
  Weight: 56.7 kg

DRUGS (3)
  1. LISINOPRIL [Concomitant]
     Dosage: A LITTLE OVER TWO YEARS
     Dates: start: 20090101
  2. CALCIUM [Concomitant]
  3. BONIVA [Suspect]
     Indication: OSTEOPENIA
     Dosage: OTHER INDICATION: OSTEOPOROSIS
     Route: 048
     Dates: start: 20091101

REACTIONS (3)
  - APPENDICITIS [None]
  - SPLENIC LESION [None]
  - INFECTION [None]
